FAERS Safety Report 4442441-2 (Version None)
Quarter: 2004Q3

REPORT INFORMATION
  Report Type: 
  Country: None (occurrence: None)
  Receive Date: 20040903
  Receipt Date: 20040729
  Transmission Date: 20050211
  Serious: Yes (Other)
  Sender: FDA-Public Use
  Company Number: 2004UW16206

PATIENT
  Age: 80 Year
  Sex: Male
  Weight: 54.4316 kg

DRUGS (7)
  1. CRESTOR [Suspect]
     Indication: BLOOD CHOLESTEROL INCREASED
     Dosage: 10 MG QD PO
     Route: 048
  2. CARTIA XT [Concomitant]
  3. IMDUR [Concomitant]
  4. PLAVIX [Concomitant]
  5. ZETIA [Concomitant]
  6. SINGULAIR [Concomitant]
  7. PROZAC [Concomitant]

REACTIONS (4)
  - ARTHRALGIA [None]
  - BLOOD TRIGLYCERIDES INCREASED [None]
  - INSOMNIA [None]
  - PAIN [None]
